FAERS Safety Report 5906248-9 (Version None)
Quarter: 2008Q4

REPORT INFORMATION
  Report Type: 
  Country: None (occurrence: None)
  Receive Date: 20081002
  Receipt Date: 20080909
  Transmission Date: 20090506
  Serious: Yes (Death)
  Sender: FDA-Public Use
  Company Number: KR-PFIZER INC-2008078666

PATIENT
  Sex: Male

DRUGS (3)
  1. CAMPTOSAR [Suspect]
     Indication: COLON CANCER
     Route: 042
     Dates: start: 20060627
  2. FLUOROURACIL [Concomitant]
     Route: 042
     Dates: start: 20060627, end: 20060628
  3. LEUCOVORIN CALCIUM [Concomitant]
     Route: 042
     Dates: start: 20060627

REACTIONS (2)
  - PERITONITIS [None]
  - SEPSIS [None]
